FAERS Safety Report 17069970 (Version 1)
Quarter: 2019Q4

REPORT INFORMATION
  Report Type: Spontaneous
  Country: US (occurrence: US)
  Receive Date: 20191125
  Receipt Date: 20191125
  Transmission Date: 20200122
  Serious: No
  Sender: FDA-Public Use
  Company Number: US-ELI_LILLY_AND_COMPANY-US201911010206

PATIENT
  Sex: Female

DRUGS (1)
  1. FORTEO [Suspect]
     Active Substance: TERIPARATIDE
     Indication: COMPRESSION FRACTURE
     Dosage: 20 UG, UNKNOWN
     Route: 058
     Dates: start: 201908

REACTIONS (3)
  - Movement disorder [Unknown]
  - Off label use [Unknown]
  - Wrist fracture [Unknown]

NARRATIVE: CASE EVENT DATE: 201908
